FAERS Safety Report 11518453 (Version 1)
Quarter: 2015Q3

REPORT INFORMATION
  Report Type: Spontaneous
  Country: US (occurrence: US)
  Receive Date: 20150917
  Receipt Date: 20150917
  Transmission Date: 20151125
  Serious: Yes (Hospitalization)
  Sender: FDA-Public Use
  Company Number: US-PERRIGO-15US009345

PATIENT
  Age: 28 Year
  Sex: Male

DRUGS (1)
  1. ACETAMINOPHEN 650MG ER 544 [Suspect]
     Active Substance: ACETAMINOPHEN
     Indication: INTENTIONAL OVERDOSE
     Dosage: UNKNOWN, SINGLE
     Route: 048

REACTIONS (4)
  - Intentional overdose [Recovered/Resolved]
  - Sinus tachycardia [Unknown]
  - Coma [Recovered/Resolved]
  - Lactic acidosis [Recovered/Resolved]
